FAERS Safety Report 4816112-4 (Version None)
Quarter: 2005Q4

REPORT INFORMATION
  Report Type: 
  Country: None (occurrence: None)
  Receive Date: 20051026
  Receipt Date: 20051013
  Transmission Date: 20060501
  Serious: Yes (Hospitalization, Other)
  Sender: FDA-Public Use
  Company Number: 178681

PATIENT
  Age: 49 Year
  Sex: Female
  Weight: 68.4932 kg

DRUGS (5)
  1. AVONEX [Suspect]
     Indication: MULTIPLE SCLEROSIS
     Dosage: 30  UG; QW; IM
     Route: 030
     Dates: start: 19990301, end: 20030101
  2. AVONEX [Suspect]
     Indication: MULTIPLE SCLEROSIS
     Dosage: 30 UG; QW; IM
     Route: 030
     Dates: start: 20030101
  3. ZOLOFT [Concomitant]
  4. FIORICET [Concomitant]
  5. BACLOFEN [Concomitant]

REACTIONS (6)
  - CONDITION AGGRAVATED [None]
  - HIP ARTHROPLASTY [None]
  - INFLUENZA LIKE ILLNESS [None]
  - MULTIPLE SCLEROSIS [None]
  - MUSCLE SPASMS [None]
  - OSTEONECROSIS [None]
